FAERS Safety Report 7673010-9 (Version None)
Quarter: 2011Q3

REPORT INFORMATION
  Report Type: 
  Country: None (occurrence: None)
  Receive Date: 20110809
  Receipt Date: 20110801
  Transmission Date: 20111222
  Serious: No
  Sender: FDA-Public Use
  Company Number: US-ASTRAZENECA-2010SE18611

PATIENT
  Age: 83 Year
  Sex: Female

DRUGS (4)
  1. DIOVAN [Concomitant]
  2. NEXIUM [Suspect]
     Route: 048
  3. VERAPAMIL [Concomitant]
  4. PULMICORT FLEXHALER [Suspect]
     Route: 055

REACTIONS (2)
  - VISUAL IMPAIRMENT [None]
  - DYSPEPSIA [None]
